FAERS Safety Report 6636345-4 (Version None)
Quarter: 2010Q1

REPORT INFORMATION
  Report Type: 
  Country: None (occurrence: None)
  Receive Date: 20100316
  Receipt Date: 20100301
  Transmission Date: 20100710
  Serious: Yes (Death, Other)
  Sender: FDA-Public Use
  Company Number: FR-ROCHE-688097

PATIENT
  Age: 55 Year
  Sex: Male

DRUGS (9)
  1. DACLIZUMAB [Suspect]
     Indication: ACUTE GRAFT VERSUS HOST DISEASE
     Dosage: DRUG NAME REPORTED AS INTERLEUKIN-2 (IL-2) RECEPTOR MONOCLONAL ANTIBODY.
     Route: 065
  2. MYCOPHENOLATE MOFETIL [Suspect]
     Indication: PROPHYLAXIS AGAINST GRAFT VERSUS HOST DISEASE
     Route: 065
  3. SULFAMETHOXAZOLE AND TRIMETHOPRIM [Suspect]
     Indication: DRUG USE FOR UNKNOWN INDICATION
     Route: 065
  4. VALGANCICLOVIR HCL [Suspect]
     Indication: DRUG USE FOR UNKNOWN INDICATION
     Route: 065
  5. CYCLOSPORINE [Suspect]
     Indication: PROPHYLAXIS AGAINST GRAFT VERSUS HOST DISEASE
     Route: 065
  6. TACROLIMUS [Suspect]
     Indication: PROPHYLAXIS AGAINST GRAFT VERSUS HOST DISEASE
     Route: 065
  7. POSACONAZOLE [Concomitant]
     Indication: ANTIFUNGAL PROPHYLAXIS
  8. PENICILLIN V [Concomitant]
     Dosage: 2 MILLIONS UNIT DAILY
     Route: 048
  9. PENTAMIDINE ISETHIONATE [Concomitant]
     Dosage: DRUG REPORTED AS AEROSOLIZED PENTAMIDINE

REACTIONS (2)
  - NEUTROPENIA [None]
  - NOCARDIOSIS [None]
